FAERS Safety Report 8199005-7 (Version None)
Quarter: 2012Q1

REPORT INFORMATION
  Report Type: 
  Country: None (occurrence: None)
  Receive Date: 20120309
  Receipt Date: 20120305
  Transmission Date: 20120608
  Serious: Yes (Other)
  Sender: FDA-Public Use
  Company Number: PT-BAYER-2012-021870

PATIENT
  Age: 11 Year
  Sex: Male

DRUGS (2)
  1. KOGENATE [Suspect]
     Indication: TOOTH EXTRACTION
     Dosage: UNK
     Dates: start: 20030201, end: 20030201
  2. KOGENATE [Suspect]
     Indication: HAEMORRHAGE PROPHYLAXIS
     Dosage: UNK
     Dates: start: 20030201, end: 20030201

REACTIONS (1)
  - POST PROCEDURAL HAEMORRHAGE [None]
